FAERS Safety Report 9863951 (Version 1)
Quarter: 2014Q1

REPORT INFORMATION
  Report Type: Spontaneous
  Country: US (occurrence: US)
  Receive Date: 20140203
  Receipt Date: 20140203
  Transmission Date: 20141002
  Serious: No
  Sender: FDA-Public Use
  Company Number: US-009507513-1401USA011950

PATIENT
  Age: 25 Year
  Sex: Male

DRUGS (1)
  1. PROPECIA [Suspect]
     Indication: ANDROGENETIC ALOPECIA
     Dosage: 1 MG, QD
     Route: 048
     Dates: start: 201302, end: 201306

REACTIONS (14)
  - Peyronie^s disease [Not Recovered/Not Resolved]
  - Arthritis [Not Recovered/Not Resolved]
  - Apathy [Not Recovered/Not Resolved]
  - Quality of life decreased [Not Recovered/Not Resolved]
  - Depression [Not Recovered/Not Resolved]
  - Anxiety [Not Recovered/Not Resolved]
  - Joint instability [Not Recovered/Not Resolved]
  - Muscular weakness [Not Recovered/Not Resolved]
  - Weight increased [Not Recovered/Not Resolved]
  - Disturbance in attention [Not Recovered/Not Resolved]
  - Discomfort [Not Recovered/Not Resolved]
  - Scrotal disorder [Not Recovered/Not Resolved]
  - Genital hypoaesthesia [Not Recovered/Not Resolved]
  - Feeling abnormal [Not Recovered/Not Resolved]
